FAERS Safety Report 5389551-3 (Version None)
Quarter: 2007Q3

REPORT INFORMATION
  Report Type: 
  Country: None (occurrence: None)
  Receive Date: 20070717
  Receipt Date: 20070709
  Transmission Date: 20080115
  Serious: Yes (Other)
  Sender: FDA-Public Use
  Company Number: US-PFIZER INC-2007042614

PATIENT
  Sex: Female
  Weight: 78 kg

DRUGS (9)
  1. DEPO-MEDROL [Suspect]
     Indication: SINUSITIS
     Route: 042
  2. DEPO-MEDROL [Suspect]
     Indication: GASTRITIS
  3. ZYRTEC [Concomitant]
  4. SINGULAIR [Concomitant]
  5. PEPCID [Concomitant]
  6. ZOFRAN [Concomitant]
  7. ALBUTEROL [Concomitant]
  8. ACETAMINOPHEN [Concomitant]
  9. IBUPROFEN [Concomitant]

REACTIONS (2)
  - DRUG ADMINISTRATION ERROR [None]
  - WHEEZING [None]
